FAERS Safety Report 20082636 (Version 2)
Quarter: 2021Q4

REPORT INFORMATION
  Report Type: Spontaneous
  Country: DE (occurrence: DE)
  Receive Date: 20211117
  Receipt Date: 20211122
  Transmission Date: 20220304
  Serious: Yes (Hospitalization)
  Sender: FDA-Public Use
  Company Number: DE-ADRED-07154-01

PATIENT
  Age: 90 Year
  Sex: Female

DRUGS (12)
  1. HYDROCHLOROTHIAZIDE [Suspect]
     Active Substance: HYDROCHLOROTHIAZIDE
     Indication: Product used for unknown indication
     Dosage: 25 MILLIGRAM (25 MG)
  2. TORSEMIDE [Suspect]
     Active Substance: TORSEMIDE
     Indication: Product used for unknown indication
     Dosage: UNK (10|5 MG)
  3. GLIMEPIRIDE [Concomitant]
     Active Substance: GLIMEPIRIDE
     Dosage: 2 MILLIGRAM (2 MG)
  4. METFORMIN [Concomitant]
     Active Substance: METFORMIN HYDROCHLORIDE
     Dosage: 1 GRAM (1G)
  5. SITAGLIPTIN [Concomitant]
     Active Substance: SITAGLIPTIN
     Dosage: 100 MILLIGRAM (100 MG)
  6. SIMVASTATIN [Concomitant]
     Active Substance: SIMVASTATIN
     Dosage: 40 MILLIGRAM (40 MG)
  7. AMLODIPIN                          /00972401/ [Concomitant]
     Dosage: 2.5 MILLIGRAM (2.5 MG)
  8. BISOPROLOL [Concomitant]
     Active Substance: BISOPROLOL
     Dosage: 5 MILLIGRAM (5 MG)
  9. CHOLECALCIFEROL [Concomitant]
     Active Substance: CHOLECALCIFEROL
     Dosage: 20000 INTERNATIONAL UNIT (20000 IE)
  10. INSULIN DETEMIR [Concomitant]
     Active Substance: INSULIN DETEMIR
     Dosage: UNK
  11. OMEPRAZOL                          /00661201/ [Concomitant]
     Dosage: 20 MILLIGRAM (20 MG)
  12. RAMIPRIL [Concomitant]
     Active Substance: RAMIPRIL
     Dosage: 5 MILLIGRAM (5 MG)

REACTIONS (15)
  - Hyperglycaemia [Unknown]
  - Weight increased [Unknown]
  - Systemic infection [Unknown]
  - Headache [Unknown]
  - Coronavirus test positive [Unknown]
  - Diarrhoea [Unknown]
  - Disorientation [Unknown]
  - Fatigue [Unknown]
  - Vomiting [Unknown]
  - General physical health deterioration [Unknown]
  - Hypotension [Unknown]
  - Renal impairment [Unknown]
  - Hyponatraemia [Unknown]
  - Electrocardiogram abnormal [Unknown]
  - Pyrexia [Unknown]
